FAERS Safety Report 9520115 (Version 4)
Quarter: 2013Q4

REPORT INFORMATION
  Report Type: Report from Study
  Country: US (occurrence: US)
  Receive Date: 20130912
  Receipt Date: 20131119
  Transmission Date: 20140711
  Serious: No
  Sender: FDA-Public Use
  Company Number: US-VERTEX PHARMACEUTICALS INC-2013-009446

PATIENT
  Age: 55 Year
  Sex: Female
  Weight: 77.98 kg

DRUGS (4)
  1. VX-950 (TELAPREVIR) [Suspect]
     Indication: HEPATITIS C
     Dosage: 750 MG, TID
     Route: 048
     Dates: start: 20130823
  2. PEGASYS [Suspect]
     Indication: HEPATITIS C
     Dosage: 180 ?G, QW
     Route: 058
     Dates: start: 20130823
  3. RIBAVIRIN [Suspect]
     Indication: HEPATITIS C
     Dosage: 600 MG, BID
     Route: 048
     Dates: start: 20130823
  4. RIBAVIRIN [Suspect]
     Dosage: 2 TABS
     Route: 048
     Dates: start: 20131011

REACTIONS (9)
  - Headache [Not Recovered/Not Resolved]
  - Pyrexia [Not Recovered/Not Resolved]
  - Nasopharyngitis [Not Recovered/Not Resolved]
  - Dysuria [Not Recovered/Not Resolved]
  - Rash [Recovered/Resolved]
  - Diarrhoea [Not Recovered/Not Resolved]
  - Anorectal discomfort [Not Recovered/Not Resolved]
  - Pruritus [Not Recovered/Not Resolved]
  - Anaemia [Not Recovered/Not Resolved]
